FAERS Safety Report 6187975-8 (Version None)
Quarter: 2009Q2

REPORT INFORMATION
  Report Type: 
  Country: None (occurrence: None)
  Receive Date: 20090513
  Receipt Date: 20090507
  Transmission Date: 20091009
  Serious: Yes (Death, Life-Threatening, Hospitalization)
  Sender: FDA-Public Use
  Company Number: ZA-ROCHE-631989

PATIENT
  Sex: Female

DRUGS (7)
  1. CAPECITABINE [Suspect]
     Route: 048
     Dates: start: 20090216
  2. CAPECITABINE [Suspect]
     Dosage: SECOND CYCLE
     Route: 048
     Dates: start: 20090309
  3. ELOXATIN [Suspect]
     Route: 041
     Dates: start: 20090216
  4. ELOXATIN [Suspect]
     Route: 041
     Dates: start: 20090309, end: 20090309
  5. DECADRON [Concomitant]
     Route: 041
     Dates: start: 20090216, end: 20090309
  6. ONICIT [Concomitant]
     Indication: NAUSEA
     Dosage: ROUTE: INTRAVENOUS (NOS)
     Route: 042
     Dates: start: 20090216, end: 20090309
  7. DANTRON [Concomitant]
     Indication: NAUSEA
     Route: 048
     Dates: start: 20090216, end: 20090309

REACTIONS (7)
  - DEHYDRATION [None]
  - DIARRHOEA [None]
  - EMPHYSEMA [None]
  - INTESTINAL OBSTRUCTION [None]
  - NAUSEA [None]
  - NEUTROPENIA [None]
  - VOMITING [None]
